FAERS Safety Report 8767777 (Version 1)
Quarter: 2012Q4

REPORT INFORMATION
  Report Type: 
  Country: US (occurrence: US)
  Receive Date: 20120830
  Receipt Date: 20120830
  Transmission Date: 20130627
  Serious: Yes (Hospitalization, Other)
  Sender: FDA-Public Use
  Company Number: US-ELI_LILLY_AND_COMPANY-US201208008608

PATIENT

DRUGS (8)
  1. FORTEO [Suspect]
     Indication: OSTEOPOROSIS
     Dosage: 20 ug, qd
     Dates: start: 201106
  2. SIMVASTATIN [Concomitant]
  3. LISINOPRIL [Concomitant]
  4. PROAIR [Concomitant]
  5. ALBUTEROL [Concomitant]
     Dosage: UNK, bid
  6. ALPRAZOLAM [Concomitant]
     Indication: SLEEP DISORDER
     Dosage: UNK, prn
  7. OXYGEN [Concomitant]
     Indication: EMPHYSEMA
  8. CORTICOSTEROIDS [Concomitant]

REACTIONS (26)
  - Coma [Recovering/Resolving]
  - Brain contusion [Recovering/Resolving]
  - Cerebrovascular accident [Unknown]
  - Blood pressure decreased [Recovering/Resolving]
  - Heart rate irregular [Recovering/Resolving]
  - Atrial fibrillation [Recovering/Resolving]
  - Macular degeneration [Unknown]
  - Fall [Recovering/Resolving]
  - Overdose [Recovering/Resolving]
  - Adverse drug reaction [Unknown]
  - Amnesia [Unknown]
  - Asthenia [Unknown]
  - Fatigue [Unknown]
  - Activities of daily living impaired [Unknown]
  - Gait disturbance [Unknown]
  - Walking aid user [Unknown]
  - Emphysema [Not Recovered/Not Resolved]
  - Abdominal pain upper [Unknown]
  - Squamous cell carcinoma of skin [Unknown]
  - Hemiparesis [Unknown]
  - Breast pain [Unknown]
  - Breast mass [Unknown]
  - Drug ineffective [Unknown]
  - Visual acuity reduced [Unknown]
  - Lung disorder [Unknown]
  - Movement disorder [Unknown]
